FAERS Safety Report 21626607 (Version 1)
Quarter: 2022Q4

REPORT INFORMATION
  Report Type: Other
  Country: DE (occurrence: None)
  Receive Date: 20221122
  Receipt Date: 20221122
  Transmission Date: 20230112
  Serious: Yes (Hospitalization)
  Sender: FDA-Public Use
  Company Number: DE-ROCHE-3222094

PATIENT
  Age: 82 Year
  Sex: Female

DRUGS (1)
  1. RITUXIMAB [Suspect]
     Active Substance: RITUXIMAB
     Indication: Rheumatoid arthritis
     Route: 065

REACTIONS (1)
  - COVID-19 pneumonia [Recovered/Resolved]

NARRATIVE: CASE EVENT DATE: 20220801
